FAERS Safety Report 4496625-8 (Version None)
Quarter: 2004Q4

REPORT INFORMATION
  Report Type: 
  Country: None (occurrence: None)
  Receive Date: 20041108
  Receipt Date: 20040804
  Transmission Date: 20050328
  Serious: No
  Sender: FDA-Public Use
  Company Number: 2004SE04155

PATIENT
  Age: 72 Year
  Sex: Male
  Weight: 80 kg

DRUGS (2)
  1. CRESTOR [Suspect]
     Indication: DYSLIPIDAEMIA
     Dosage: 10 MG DAILY PO
     Route: 048
     Dates: start: 20040430, end: 20040614
  2. APROVEL [Concomitant]

REACTIONS (5)
  - ASTHENIA [None]
  - CHROMATURIA [None]
  - FAECES DISCOLOURED [None]
  - HEPATITIS VIRAL [None]
  - PYREXIA [None]
